FAERS Safety Report 4636694-5 (Version None)
Quarter: 2005Q2

REPORT INFORMATION
  Report Type: 
  Country: None (occurrence: None)
  Receive Date: 20050414
  Receipt Date: 20050330
  Transmission Date: 20051028
  Serious: Yes (Death)
  Sender: FDA-Public Use
  Company Number: 212749

PATIENT
  Sex: Female

DRUGS (10)
  1. HERCEPTIN [Suspect]
     Indication: BREAST CANCER
     Dosage: 6 MG/KG, Q3W, INTRAVENOUS, 4 MG/KG
     Route: 042
     Dates: start: 20021001, end: 20031004
  2. HERCEPTIN [Suspect]
     Indication: BREAST CANCER
     Dosage: 6 MG/KG, Q3W, INTRAVENOUS, 4 MG/KG
     Route: 042
     Dates: end: 20050129
  3. HERCEPTIN [Suspect]
     Indication: BREAST CANCER
     Dosage: 6 MG/KG, Q3W, INTRAVENOUS, 4 MG/KG
     Route: 042
     Dates: start: 20031004
  4. ANTHRACYCLINE NOS (ANTHRACYCLINE NOS) [Concomitant]
  5. CHEMOTHERAPY NOS (ANTINEOPLASTIC AGENT NOS) [Concomitant]
  6. ZOMETA [Concomitant]
  7. GEMCITABINE (GEMCITABINE HYDROCHLORIDE) [Concomitant]
  8. VINORELBINE TARTRATE [Concomitant]
  9. DIURETICS (DIURETICS) [Concomitant]
  10. DIGITALIS CAP [Concomitant]

REACTIONS (10)
  - CARDIOTOXICITY [None]
  - CEREBRAL DISORDER [None]
  - CEREBRAL THROMBOSIS [None]
  - CONVULSION [None]
  - EJECTION FRACTION DECREASED [None]
  - HEADACHE [None]
  - METASTASES TO CENTRAL NERVOUS SYSTEM [None]
  - NEUROLOGICAL SYMPTOM [None]
  - VERTIGO [None]
  - VOMITING [None]
